FAERS Safety Report 5309967-0 (Version None)
Quarter: 2007Q2

REPORT INFORMATION
  Report Type: 
  Country: None (occurrence: None)
  Receive Date: 20070427
  Receipt Date: 20070424
  Transmission Date: 20071010
  Serious: Yes (Life-Threatening, Hospitalization)
  Sender: FDA-Public Use
  Company Number: 2007PK00793

PATIENT
  Age: 6831 Day
  Sex: Female
  Weight: 55.5 kg

DRUGS (8)
  1. SEROQUEL [Suspect]
     Indication: SCHIZOPHRENIA, PARANOID TYPE
     Route: 048
     Dates: start: 20070307
  2. OXAZEPAM [Suspect]
     Indication: PSYCHOTIC DISORDER
     Route: 048
     Dates: start: 20070314, end: 20070403
  3. OXAZEPAM [Suspect]
     Indication: SUICIDAL BEHAVIOUR
     Route: 048
     Dates: start: 20070314, end: 20070403
  4. DIAZEPAM [Suspect]
     Indication: PSYCHOTIC DISORDER
     Route: 048
     Dates: start: 20070404
  5. DIAZEPAM [Suspect]
     Indication: SUICIDAL BEHAVIOUR
     Route: 048
     Dates: start: 20070404
  6. PANTOZOL [Suspect]
     Indication: PROPHYLAXIS AGAINST GASTROINTESTINAL ULCER
     Route: 048
     Dates: start: 20070404
  7. MELPERON [Suspect]
     Indication: PSYCHOTIC DISORDER
     Route: 048
     Dates: start: 20070404
  8. CONTRACEPTIVE [Suspect]

REACTIONS (1)
  - ILEUS PARALYTIC [None]
